FAERS Safety Report 21700423 (Version 1)
Quarter: 2022Q4

REPORT INFORMATION
  Report Type: Spontaneous
  Country: US (occurrence: None)
  Receive Date: 20221207
  Receipt Date: 20221207
  Transmission Date: 20230113
  Serious: No
  Sender: FDA-Public Use
  Company Number: None

PATIENT
  Age: 82 Year
  Sex: Female
  Weight: 76.66 kg

DRUGS (1)
  1. ACTEMRA [Suspect]
     Active Substance: TOCILIZUMAB
     Indication: Rheumatoid arthritis
     Dosage: FREQUENCY : AS DIRECTED;?OTHER ROUTE : INTRAVENOUSLY OVER 1 HOUR EVERY 4 WEEKS ;?
     Route: 050
     Dates: start: 202002

REACTIONS (2)
  - Influenza [None]
  - Urinary tract infection [None]
